FAERS Safety Report 7151387-0 (Version None)
Quarter: 2010Q4

REPORT INFORMATION
  Report Type: 
  Country: None (occurrence: None)
  Receive Date: 20101123
  Receipt Date: 20101118
  Transmission Date: 20110411
  Serious: Yes (Death, Hospitalization, Other)
  Sender: FDA-Public Use
  Company Number: 2010SP060784

PATIENT
  Age: 64 Year
  Sex: Male
  Weight: 48 kg

DRUGS (4)
  1. TEMODAL [Suspect]
     Indication: ANAPLASTIC ASTROCYTOMA
     Dosage: 75 MG/M2; QD; PO, 150 MG/M2; QD; PO, 150 MG/M2; QD; PO
     Route: 048
     Dates: start: 20090904, end: 20091022
  2. MAGMIT [Concomitant]
  3. FURSENNID [Concomitant]
  4. LAXOBERON [Concomitant]

REACTIONS (7)
  - ANAPLASTIC ASTROCYTOMA [None]
  - CHEST PAIN [None]
  - DECREASED APPETITE [None]
  - LYMPHOCYTE COUNT DECREASED [None]
  - MALIGNANT NEOPLASM PROGRESSION [None]
  - MYOCARDIAL ISCHAEMIA [None]
  - WHITE BLOOD CELL COUNT DECREASED [None]
